FAERS Safety Report 6518106-X (Version None)
Quarter: 2009Q4

REPORT INFORMATION
  Report Type: 
  Country: None (occurrence: None)
  Receive Date: 20091224
  Receipt Date: 20091216
  Transmission Date: 20100525
  Serious: Yes (Other)
  Sender: FDA-Public Use
  Company Number: DE-ELI_LILLY_AND_COMPANY-DE200912004155

PATIENT
  Sex: Female

DRUGS (3)
  1. FORTEO [Suspect]
     Indication: OSTEOPOROSIS
     Route: 058
     Dates: start: 20090615
  2. CALCIUM [Concomitant]
     Dosage: UNK, UNKNOWN
     Route: 065
  3. VITAMIN D [Concomitant]
     Dosage: UNK, UNKNOWN

REACTIONS (2)
  - INCREASED APPETITE [None]
  - WEIGHT INCREASED [None]
